FAERS Safety Report 7028185-1 (Version None)
Quarter: 2010Q4

REPORT INFORMATION
  Report Type: 
  Country: None (occurrence: None)
  Receive Date: 20101005
  Receipt Date: 20100923
  Transmission Date: 20110411
  Serious: Yes (Hospitalization)
  Sender: FDA-Public Use
  Company Number: FR-WYE-H17823310

PATIENT
  Sex: Female

DRUGS (13)
  1. INIPOMP [Suspect]
     Dosage: UNKNOWN DAILY DOSEI
     Route: 042
     Dates: start: 20100818, end: 20100824
  2. SOLU-MEDROL [Suspect]
     Dosage: UNKNOWN DAILY DOSE
     Route: 042
     Dates: start: 20100820, end: 20100825
  3. DIPRIVAN [Suspect]
     Dosage: UNKNOWN DAILY DOSE
     Route: 042
     Dates: start: 20100822, end: 20100823
  4. AUGMENTIN '125' [Suspect]
     Dosage: UNKNOWN DAILY DOSE
     Route: 042
     Dates: start: 20100818, end: 20100823
  5. CLAFORAN [Suspect]
     Dosage: UNKNOWN DAILY DOSE
     Route: 042
     Dates: start: 20100823, end: 20100825
  6. PERINDOPRIL ERBUMINE [Concomitant]
     Dosage: UNKNOWN
  7. ORGARAN [Suspect]
     Dosage: UNKNOWN
     Route: 058
     Dates: start: 20100818, end: 20100820
  8. FENTANYL [Suspect]
     Dosage: UNKNOWN
     Route: 042
     Dates: start: 20100819, end: 20100822
  9. HYPNOVEL [Suspect]
     Dosage: UNKNOWN
     Route: 042
     Dates: start: 20100818, end: 20100822
  10. TRANXENE [Suspect]
     Dosage: UNKNOWN
     Route: 042
     Dates: start: 20100822, end: 20100825
  11. NEXIUM [Concomitant]
     Dosage: UNKNOWN
  12. LASIX [Suspect]
     Dosage: UNKNOWN DAILY DOSE
     Route: 042
     Dates: start: 20100820, end: 20100101
  13. ENOXAPARIN SODIUM [Suspect]
     Dosage: UNKNOWN
     Route: 058
     Dates: start: 20100820, end: 20100826

REACTIONS (3)
  - ALANINE AMINOTRANSFERASE INCREASED [None]
  - ASPARTATE AMINOTRANSFERASE INCREASED [None]
  - PANCREATITIS [None]
